FAERS Safety Report 11915859 (Version 1)
Quarter: 2016Q1

REPORT INFORMATION
  Report Type: Spontaneous
  Country: GB (occurrence: GB)
  Receive Date: 20160114
  Receipt Date: 20160114
  Transmission Date: 20160526
  Serious: Yes (Death, Other)
  Sender: FDA-Public Use
  Company Number: GB-ACTAVIS-2016-00050

PATIENT
  Age: 36 Year
  Sex: Male

DRUGS (1)
  1. OXYCODONE (UNKNOWN) [Suspect]
     Active Substance: OXYCODONE
     Indication: PRODUCT USED FOR UNKNOWN INDICATION
     Dosage: UNK
     Route: 065

REACTIONS (3)
  - Intentional overdose [Fatal]
  - Drug diversion [Unknown]
  - Completed suicide [Fatal]

NARRATIVE: CASE EVENT DATE: 201507
